FAERS Safety Report 4430774-5 (Version None)
Quarter: 2004Q3

REPORT INFORMATION
  Report Type: 
  Country: None (occurrence: None)
  Receive Date: 20040818
  Receipt Date: 20040803
  Transmission Date: 20050211
  Serious: No
  Sender: FDA-Public Use
  Company Number: 04P-163-0262147-00

PATIENT
  Age: 67 Year
  Sex: Female
  Weight: 56.6996 kg

DRUGS (9)
  1. HUMIRA [Suspect]
     Indication: RHEUMATOID ARTHRITIS
     Dosage: 40 MG, 1 IN 2 WK, SUBCUTANEOUS
     Route: 058
     Dates: start: 20031025, end: 20040524
  2. METHOTREXATE [Concomitant]
  3. IBUPROFEN [Concomitant]
  4. ATENOLOL [Concomitant]
  5. FOLIC ACID [Concomitant]
  6. RISEDRONATE SODIUM [Concomitant]
  7. CONJUGATED ESTROGEN [Concomitant]
  8. LAXATIVES [Concomitant]
  9. THYROXIN T3 [Concomitant]

REACTIONS (9)
  - ABDOMINAL PAIN UPPER [None]
  - ANIMAL BITE [None]
  - CHEST PAIN [None]
  - LOCALISED INFECTION [None]
  - LUNG ADENOCARCINOMA [None]
  - METASTASES TO LIVER [None]
  - PAIN OF SKIN [None]
  - SINUSITIS [None]
  - URINARY TRACT INFECTION [None]
